FAERS Safety Report 8558291-1 (Version None)
Quarter: 2012Q3

REPORT INFORMATION
  Report Type: 
  Country: None (occurrence: None)
  Receive Date: 20120801
  Receipt Date: 20120724
  Transmission Date: 20120928
  Serious: Yes (Other)
  Sender: FDA-Public Use
  Company Number: US-ELI_LILLY_AND_COMPANY-US201103008504

PATIENT
  Sex: Female

DRUGS (21)
  1. FORTEO [Suspect]
     Dosage: 20 UG, QD
  2. SINGULAIR [Concomitant]
     Dosage: 10 MG, UNK
  3. ASPIRIN [Concomitant]
     Dosage: 81 MG, UNK
  4. LOVASTATIN [Concomitant]
     Indication: BLOOD CHOLESTEROL
     Dosage: 40 MG, UNK
  5. OMEPRAZOLE [Concomitant]
     Indication: GASTROOESOPHAGEAL REFLUX DISEASE
     Dosage: 20 MG, UNK
  6. FORTEO [Suspect]
     Dosage: 20 UG, QD
     Dates: start: 20110901
  7. IMDUR [Concomitant]
     Dosage: 30 MG, UNK
  8. SYNTHROID [Concomitant]
     Dosage: 125 UG, UNK
  9. SUPER B COMPLEX [Concomitant]
     Dosage: 2 DAILY
  10. FORTEO [Suspect]
     Dosage: 20 UG, QD
     Dates: end: 20110601
  11. CLOBETASOL PROPIONATE [Concomitant]
  12. KLONOPIN [Concomitant]
     Dosage: 1 MG, UNK
  13. METENIX [Concomitant]
  14. XANAX [Concomitant]
  15. VITAMIN D [Concomitant]
     Dosage: 1000 U, BID
  16. OSTEO BI-FLEX [Concomitant]
  17. FORTEO [Suspect]
     Indication: OSTEOPOROSIS
     Dosage: 20 UG, QD
     Route: 065
     Dates: start: 20100801
  18. NAPROXEN [Concomitant]
     Dosage: 375 MG, PRN
  19. CALCIUM + VITAMIN D [Concomitant]
  20. LASIX [Concomitant]
     Dosage: 20 MG, PRN
  21. NEURONTIN [Concomitant]

REACTIONS (6)
  - BREAST CANCER METASTATIC [None]
  - MALAISE [None]
  - DRUG DOSE OMISSION [None]
  - ANXIETY [None]
  - BURNING SENSATION [None]
  - MENTAL IMPAIRMENT [None]
